FAERS Safety Report 18973270 (Version 1)
Quarter: 2021Q1

REPORT INFORMATION
  Report Type: Spontaneous
  Country: FR (occurrence: FR)
  Receive Date: 20210305
  Receipt Date: 20210305
  Transmission Date: 20210420
  Serious: Yes (Congenital Anomaly, Other)
  Sender: FDA-Public Use
  Company Number: FR-ACCORD-218666

PATIENT
  Sex: Male

DRUGS (1)
  1. FLUOROURACIL. [Suspect]
     Active Substance: FLUOROURACIL
     Route: 064
     Dates: start: 201910, end: 201911

REACTIONS (2)
  - Accidental exposure to product [Unknown]
  - Vascular neoplasm [Recovering/Resolving]

NARRATIVE: CASE EVENT DATE: 20200709
